FAERS Safety Report 6087448-7 (Version None)
Quarter: 2009Q1

REPORT INFORMATION
  Report Type: 
  Country: None (occurrence: None)
  Receive Date: 20090218
  Receipt Date: 20090218
  Transmission Date: 20090719
  Serious: No
  Sender: FDA-Public Use
  Company Number: None

PATIENT
  Age: 63 Year
  Sex: Male
  Weight: 85.7298 kg

DRUGS (1)
  1. FENTANYL TRANSDERMAL SYSTEM [Suspect]
     Indication: PAIN
     Dosage: 100MCG/HR Q72H TRANSDRMAL
     Route: 062
     Dates: start: 20090203, end: 20090203

REACTIONS (2)
  - DRUG DELIVERY SYSTEM MALFUNCTION [None]
  - PRODUCT QUALITY ISSUE [None]
